FAERS Safety Report 4552393-2 (Version None)
Quarter: 2005Q1

REPORT INFORMATION
  Report Type: 
  Country: None (occurrence: None)
  Receive Date: 20050114
  Receipt Date: 20040416
  Transmission Date: 20050727
  Serious: No
  Sender: FDA-Public Use
  Company Number: US-GLAXOSMITHKLINE-A0507424A

PATIENT
  Age: 52 Year
  Sex: Female
  Weight: 86.4 kg

DRUGS (5)
  1. IMITREX [Suspect]
     Indication: MIGRAINE
     Dosage: 6MG AS REQUIRED
     Route: 058
  2. ACIPHEX [Concomitant]
     Dosage: 20MG PER DAY
     Route: 048
  3. VALIUM [Concomitant]
     Indication: ANXIETY
     Dosage: 10MG AS REQUIRED
     Route: 048
     Dates: start: 20010322
  4. CELEXA [Concomitant]
     Indication: PROPHYLAXIS
     Route: 048
  5. TOPAMAX [Concomitant]
     Indication: PROPHYLAXIS
     Dosage: 25MG PER DAY
     Route: 048

REACTIONS (1)
  - BLOOD CHOLESTEROL INCREASED [None]
